FAERS Safety Report 4711807-5 (Version None)
Quarter: 2005Q3

REPORT INFORMATION
  Report Type: 
  Country: None (occurrence: None)
  Receive Date: 20050712
  Receipt Date: 20050701
  Transmission Date: 20060218
  Serious: Yes (Other)
  Sender: FDA-Public Use
  Company Number: JP-SOLVAY-00305002189

PATIENT
  Age: 32 Year
  Sex: Female

DRUGS (6)
  1. DEPROMEL 25 [Suspect]
     Indication: ILL-DEFINED DISORDER
     Dosage: DAILY DOSE: 50 MILLIGRAM(S)
     Route: 048
     Dates: start: 20050603, end: 20050629
  2. DEPAS [Suspect]
     Indication: ILL-DEFINED DISORDER
     Dosage: DAILY DOSE: 2 MILLIGRAM(S)
     Route: 048
     Dates: start: 20050603, end: 20050629
  3. DOGMATYL [Suspect]
     Indication: ILL-DEFINED DISORDER
     Dosage: DAILY DOSE: 150 MILLIGRAM(S)
     Route: 048
     Dates: start: 20050603, end: 20050629
  4. MEPIVACAINE HCL [Suspect]
     Indication: ILL-DEFINED DISORDER
     Dosage: DOSAGE: 2.5 ML 2TIMES/MONTH
     Route: 042
     Dates: start: 20030124, end: 20050629
  5. DIBCALSOR [Suspect]
     Indication: ILL-DEFINED DISORDER
     Dosage: DOSAGE: 2.5 ML 2TIMES/MONTHS
     Route: 042
     Dates: start: 20030124, end: 20050629
  6. DEXAMETHASONE ACETATE [Suspect]
     Indication: ILL-DEFINED DISORDER
     Dosage: DOSAGE: 1 MG 2TIMES/MONTHS
     Route: 042
     Dates: start: 20030124, end: 20050629

REACTIONS (2)
  - DRUG ERUPTION [None]
  - OBSTRUCTIVE AIRWAYS DISORDER [None]
